FAERS Safety Report 19189799 (Version 1)
Quarter: 2021Q2

REPORT INFORMATION
  Report Type: Spontaneous
  Country: US (occurrence: US)
  Receive Date: 20210428
  Receipt Date: 20210428
  Transmission Date: 20210717
  Serious: Yes (Life-Threatening, Hospitalization, Other)
  Sender: FDA-Public Use
  Company Number: US-NORTHSTAR HEALTHCARE HOLDINGS-US-2021NSR000018

PATIENT
  Age: 12 Year
  Sex: Male

DRUGS (4)
  1. BACLOFEN. [Suspect]
     Active Substance: BACLOFEN
     Indication: PRODUCT USED FOR UNKNOWN INDICATION
     Dosage: 28?G/HR W/ 75?G BOLUS 8PM;TOTAL DAILY DOSE 746.1?G;ROUTE:IT PUMP
     Route: 050
  2. BACLOFEN. [Suspect]
     Active Substance: BACLOFEN
     Dosage: 1/2 PRIMING BOLUS,500 ?G,QD;ROUTE:IT PUMP
     Route: 050
  3. BACLOFEN. [Suspect]
     Active Substance: BACLOFEN
     Dosage: 12.5 ?G, QD (ROUTE: IT PUMP)
     Route: 050
  4. BACLOFEN. [Suspect]
     Active Substance: BACLOFEN
     Dosage: 820 ?G, QD (ROUTE: IT PUMP)
     Route: 050

REACTIONS (6)
  - Unresponsive to stimuli [Recovered/Resolved]
  - Coma [Recovered/Resolved]
  - Overdose [Recovered/Resolved]
  - Toxicity to various agents [Recovered/Resolved]
  - Seizure [Recovered/Resolved]
  - Mental status changes [Recovered/Resolved]
